FAERS Safety Report 17319526 (Version 2)
Quarter: 2020Q1

REPORT INFORMATION
  Report Type: Spontaneous
  Country: US (occurrence: US)
  Receive Date: 20200125
  Receipt Date: 20200204
  Transmission Date: 20200409
  Serious: No
  Sender: FDA-Public Use
  Company Number: US-UNITED THERAPEUTICS-UNT-2020-000927

PATIENT
  Sex: Male
  Weight: 74.83 kg

DRUGS (3)
  1. LETAIRIS [Concomitant]
     Active Substance: AMBRISENTAN
     Indication: PRODUCT USED FOR UNKNOWN INDICATION
     Route: 065
  2. ADCIRCA [Concomitant]
     Active Substance: TADALAFIL
     Indication: PULMONARY ARTERIAL HYPERTENSION
     Route: 065
  3. REMODULIN [Suspect]
     Active Substance: TREPROSTINIL
     Indication: PULMONARY ARTERIAL HYPERTENSION
     Dosage: 0.0262 ?G/KG, CONTINUING
     Route: 058
     Dates: start: 20180709

REACTIONS (9)
  - Infusion site pain [Recovered/Resolved]
  - Purulent discharge [Recovered/Resolved]
  - Infusion site irritation [Recovered/Resolved]
  - Infusion site erythema [Recovered/Resolved]
  - Infusion site inflammation [Recovered/Resolved]
  - Infusion site haemorrhage [Recovered/Resolved]
  - Infusion site thrombosis [Recovered/Resolved]
  - Infusion site discharge [Recovered/Resolved]
  - Infusion site scab [Recovered/Resolved]
